FAERS Safety Report 10245324 (Version 1)
Quarter: 2014Q2

REPORT INFORMATION
  Report Type: Report from Study
  Country: RU (occurrence: RU)
  Receive Date: 20140618
  Receipt Date: 20140618
  Transmission Date: 20141212
  Serious: No
  Sender: FDA-Public Use
  Company Number: RU-UCBSA-2014000955

PATIENT
  Age: 32 Year
  Sex: Male
  Weight: 60.7 kg

DRUGS (1)
  1. LACOSAMIDE EP [Suspect]
     Indication: EPILEPSY
     Dosage: UNK, 2X/DAY (BID)

REACTIONS (1)
  - Sinus bradycardia [Not Recovered/Not Resolved]
